FAERS Safety Report 8571899-2 (Version None)
Quarter: 2012Q3

REPORT INFORMATION
  Report Type: 
  Country: None (occurrence: None)
  Receive Date: 20120806
  Receipt Date: 20120726
  Transmission Date: 20120928
  Serious: Yes (Life-Threatening, Hospitalization)
  Sender: FDA-Public Use
  Company Number: JP-NOVOPROD-355064

PATIENT
  Age: 67 Year
  Sex: Female
  Weight: 41 kg

DRUGS (8)
  1. NOVORAPID CHU FLEXPEN [Suspect]
     Indication: DIABETES MELLITUS
     Dosage: 20 U, QD
     Route: 065
     Dates: start: 20120521, end: 20120628
  2. IRBESARTAN [Suspect]
     Dosage: 50 MG, QD
     Route: 048
     Dates: start: 20120101, end: 20120628
  3. DAIKENTYUTO [Suspect]
     Dosage: UNK
     Route: 048
     Dates: start: 20120626, end: 20120628
  4. LACTOMIN [Concomitant]
     Dosage: UNK
     Route: 048
     Dates: start: 20120626, end: 20120628
  5. LEVEMIR [Suspect]
     Indication: DIABETES MELLITUS
     Dosage: 16 U, QD
     Route: 065
     Dates: start: 20120521, end: 20120628
  6. MAGNESIUM OXIDE [Concomitant]
     Dosage: UNK
     Route: 048
     Dates: start: 20120626, end: 20120628
  7. CARBOPLATIN [Concomitant]
     Indication: OVARIAN CANCER
     Dosage: UNK
     Route: 065
     Dates: start: 20120621
  8. TAXOTERE [Concomitant]
     Indication: OVARIAN CANCER
     Dosage: UNK
     Route: 065
     Dates: start: 20120621

REACTIONS (3)
  - ERYTHEMA MULTIFORME [None]
  - STEVENS-JOHNSON SYNDROME [None]
  - ORAL HERPES [None]
